FAERS Safety Report 6769368-5 (Version None)
Quarter: 2010Q2

REPORT INFORMATION
  Report Type: 
  Country: None (occurrence: None)
  Receive Date: 20100615
  Receipt Date: 20100610
  Transmission Date: 20101027
  Serious: Yes (Hospitalization)
  Sender: FDA-Public Use
  Company Number: US-B.I. PHARMACEUTICALS,INC./RIDGEFIELD-2010-BP-03897BP

PATIENT
  Sex: Male

DRUGS (9)
  1. SPIRIVA [Suspect]
     Indication: CHRONIC OBSTRUCTIVE PULMONARY DISEASE
     Dosage: 18 MCG
     Route: 055
     Dates: start: 20080101
  2. ADVAIR DISKUS 100/50 [Concomitant]
     Indication: CHRONIC OBSTRUCTIVE PULMONARY DISEASE
     Route: 055
     Dates: start: 20090101
  3. BENICAR [Concomitant]
     Indication: HYPERTENSION
  4. ZANTAC [Concomitant]
     Indication: GASTROOESOPHAGEAL REFLUX DISEASE
  5. ANTACIDS GENERIC [Concomitant]
     Indication: GASTROOESOPHAGEAL REFLUX DISEASE
  6. METFORMIN HCL [Concomitant]
     Indication: DIABETES MELLITUS
  7. ASPIRIN [Concomitant]
     Indication: PROPHYLAXIS
  8. DICLOFENAC SODIUM [Concomitant]
     Indication: ARTHRITIS
  9. PLAVIX [Concomitant]

REACTIONS (4)
  - ANXIETY [None]
  - CORONARY ARTERY OCCLUSION [None]
  - DYSPNOEA [None]
  - INSOMNIA [None]
